FAERS Safety Report 12088744 (Version 2)
Quarter: 2016Q1

REPORT INFORMATION
  Report Type: Report from Study
  Country: US (occurrence: US)
  Receive Date: 20160218
  Receipt Date: 20160308
  Transmission Date: 20160526
  Serious: Yes (Other)
  Sender: FDA-Public Use
  Company Number: US-EMD SERONO-E2B_80025841

PATIENT
  Age: 40 Year
  Sex: Male

DRUGS (2)
  1. REBIF [Suspect]
     Active Substance: INTERFERON BETA-1A
     Route: 058
  2. REBIF [Suspect]
     Active Substance: INTERFERON BETA-1A
     Indication: MULTIPLE SCLEROSIS
     Route: 058
     Dates: start: 20070629

REACTIONS (11)
  - Immunosuppression [Not Recovered/Not Resolved]
  - Lyme disease [Unknown]
  - Tongue discolouration [Unknown]
  - Multiple sclerosis [Not Recovered/Not Resolved]
  - Peripheral coldness [Unknown]
  - Kidney infection [Unknown]
  - Escherichia urinary tract infection [Recovered/Resolved]
  - Urinary tract infection enterococcal [Not Recovered/Not Resolved]
  - Pathogen resistance [Not Recovered/Not Resolved]
  - Lactic acidosis [Not Recovered/Not Resolved]
  - Urinary tract infection [Not Recovered/Not Resolved]

NARRATIVE: CASE EVENT DATE: 201009
